FAERS Safety Report 25016022 (Version 2)
Quarter: 2025Q1

REPORT INFORMATION
  Report Type: Spontaneous
  Country: US (occurrence: US)
  Receive Date: 20250227
  Receipt Date: 20250312
  Transmission Date: 20250408
  Serious: Yes (Other)
  Sender: AMNEAL
  Company Number: US-AMNEAL PHARMACEUTICALS-2025-AMRX-00638

PATIENT
  Age: 52 Year
  Sex: Female
  Weight: 81.633 kg

DRUGS (2)
  1. TRIAMCINOLONE ACETONIDE [Suspect]
     Active Substance: TRIAMCINOLONE ACETONIDE
     Indication: Swelling
     Route: 023
  2. TRIAMCINOLONE ACETONIDE [Suspect]
     Active Substance: TRIAMCINOLONE ACETONIDE
     Indication: Scar excision

REACTIONS (12)
  - Seizure [Recovering/Resolving]
  - Cataract [Unknown]
  - Blindness [Recovering/Resolving]
  - Hippocampal atrophy [Unknown]
  - Product contamination microbial [Unknown]
  - Vision blurred [Recovering/Resolving]
  - Glare [Unknown]
  - Impaired driving ability [Unknown]
  - Atrophy [Unknown]
  - Emotional disorder [Unknown]
  - Liquid product physical issue [Unknown]
  - Product with quality issue administered [Unknown]

NARRATIVE: CASE EVENT DATE: 20220801
